FAERS Safety Report 8890059 (Version 1)
Quarter: 2012Q4

REPORT INFORMATION
  Report Type: 
  Country: CA (occurrence: CA)
  Receive Date: 20121106
  Receipt Date: 20121106
  Transmission Date: 20130627
  Serious: Yes (Death)
  Sender: FDA-Public Use
  Company Number: PHMT2007CA02017

PATIENT
  Sex: Male

DRUGS (1)
  1. SANDOSTATIN LAR [Suspect]
     Indication: HEPATIC NEOPLASM MALIGNANT
     Dosage: 30 mg, QMO
     Route: 030
     Dates: start: 20070910, end: 20070910

REACTIONS (3)
  - Death [Fatal]
  - Blood pressure increased [Unknown]
  - Heart rate increased [Unknown]
